FAERS Safety Report 8873708 (Version 1)
Quarter: 2012Q4

REPORT INFORMATION
  Report Type: 
  Country: US (occurrence: US)
  Receive Date: 20121023
  Receipt Date: 20121023
  Transmission Date: 20130627
  Serious: No
  Sender: FDA-Public Use
  Company Number: US-ASTELLAS-2012US004330

PATIENT
  Age: 94 Year
  Sex: Female
  Weight: 55 kg

DRUGS (2)
  1. LEXISCAN [Suspect]
     Indication: SCAN MYOCARDIAL PERFUSION
     Dosage: UNK
     Route: 065
     Dates: start: 20120423, end: 20120423
  2. AMINOPHYLLINE [Suspect]
     Indication: ABDOMINAL DISCOMFORT
     Dosage: 50 mg, Total Dose
     Route: 042
     Dates: start: 20120423, end: 20120423

REACTIONS (6)
  - Feeling jittery [Unknown]
  - Stridor [Recovering/Resolving]
  - Blood glucose abnormal [Recovering/Resolving]
  - Tremor [Unknown]
  - Abdominal discomfort [Unknown]
  - Dyspnoea [Unknown]
